FAERS Safety Report 5765585-1 (Version None)
Quarter: 2008Q2

REPORT INFORMATION
  Report Type: 
  Country: None (occurrence: None)
  Receive Date: 20080606
  Receipt Date: 20080606
  Transmission Date: 20081010
  Serious: Yes (Hospitalization)
  Sender: FDA-Public Use
  Company Number: None

PATIENT
  Sex: Male
  Weight: 85.3 kg

DRUGS (3)
  1. CISPLATIN [Suspect]
     Dosage: 120 MG
  2. ERBITUX [Suspect]
     Dosage: 1800 MG
  3. IRINOTECAN HCL [Suspect]
     Dosage: 260 MG

REACTIONS (4)
  - DEEP VEIN THROMBOSIS [None]
  - HYPERCOAGULATION [None]
  - PULMONARY EMBOLISM [None]
  - TACHYCARDIA [None]
